FAERS Safety Report 8341375 (Version 2)
Quarter: 2013Q2

REPORT INFORMATION
  Report Type: Spontaneous
  Country: US (occurrence: None)
  Receive Date: 20111202
  Receipt Date: 20121203
  Transmission Date: 20140414
  Serious: Yes (Hospitalization, Other)
  Sender: FDA-Public Use
  Company Number: 2011SP046640

PATIENT
  Age: 25 Year
  Sex: Female
  Weight: 99.8 kg

DRUGS (2)
  1. NUVARING (ETONOGESTREL (+) ETHINYL ESTRADIOL) VAGINAL RING [Suspect]
     Indication: PRODUCT USED FOR UNKNOWN INDICATION
     Dosage: ACCORDING TO PLAINTIFF FACT SHEETS DOSING DATES, PATIENT BECAME PREGNANT WHILE ON NUVARING., VAGINAL
     Route: 067
     Dates: end: 2002
  2. NUVARING (ETONOGESTREL (+) ETHINYL ESTRADIOL) VAGINAL RING [Suspect]
     Indication: CONTRACEPTION
     Dosage: ACCORDING TO PLAINTIFF FACT SHEETS DOSING DATES, PATIENT BECAME PREGNANT WHILE ON NUVARING., VAGINAL
     Route: 067
     Dates: end: 2002

REACTIONS (18)
  - PULMONARY EMBOLISM [None]
  - Thrombosis [None]
  - Anxiety [None]
  - Ankle operation [None]
  - Gestational diabetes [None]
  - Unintended pregnancy [None]
  - Musculoskeletal stiffness [None]
  - Tendonitis [None]
  - Ligament sprain [None]
  - Pain in extremity [None]
  - Gastrooesophageal reflux disease [None]
  - Rash [None]
  - Contusion [None]
  - Alopecia [None]
  - Oligohydramnios [None]
  - Weight increased [None]
  - Headache [None]
  - Deep vein thrombosis [None]
